FAERS Safety Report 23359407 (Version 1)
Quarter: 2024Q1

REPORT INFORMATION
  Report Type: Spontaneous
  Country: US (occurrence: US)
  Receive Date: 20240103
  Receipt Date: 20240103
  Transmission Date: 20240409
  Serious: Yes (Other)
  Sender: FDA-Public Use
  Company Number: US-DRL-USA-LIT/USA/23/0032841

PATIENT
  Age: 22 Year
  Sex: Female

DRUGS (2)
  1. SIROLIMUS [Suspect]
     Active Substance: SIROLIMUS
     Indication: Rhabdomyoma
     Dosage: LOADING DOSE OF 5MG
  2. SIROLIMUS [Suspect]
     Active Substance: SIROLIMUS
     Dosage: SUBSEQUENT DOSE ADJUSTMENTS FOR TARGET TROUGH SIROLIMUS OF 10 TO 15NG/ML .

REACTIONS (2)
  - Exposure during pregnancy [Unknown]
  - Oligohydramnios [Unknown]
